FAERS Safety Report 9767870 (Version 2)
Quarter: 2014Q2

REPORT INFORMATION
  Report Type: Spontaneous
  Country: US (occurrence: US)
  Receive Date: 20131217
  Receipt Date: 20140522
  Transmission Date: 20141212
  Serious: No
  Sender: FDA-Public Use
  Company Number: US-009507513-1312USA006151

PATIENT
  Age: 11 Year
  Sex: Female
  Weight: 30.39 kg

DRUGS (3)
  1. MIRALAX [Suspect]
     Indication: CONSTIPATION
     Dosage: UNK, UNKNOWN
     Route: 048
     Dates: start: 201312
  2. MIRALAX [Suspect]
     Dosage: UNK
     Route: 048
     Dates: start: 2010, end: 2013
  3. VITAMINS (UNSPECIFIED) [Concomitant]
     Indication: PRODUCT USED FOR UNKNOWN INDICATION
     Dosage: UNK, UNKNOWN

REACTIONS (4)
  - Drug administered to patient of inappropriate age [Unknown]
  - Off label use [Unknown]
  - Product taste abnormal [Unknown]
  - Product odour abnormal [Unknown]
